FAERS Safety Report 24860725 (Version 1)
Quarter: 2025Q1

REPORT INFORMATION
  Report Type: Spontaneous
  Country: US (occurrence: US)
  Receive Date: 20250120
  Receipt Date: 20250120
  Transmission Date: 20250409
  Serious: No
  Sender: ROCHE
  Company Number: US-ROCHE-10000179613

PATIENT
  Sex: Female

DRUGS (1)
  1. XOLAIR [Suspect]
     Active Substance: OMALIZUMAB
     Indication: Asthma
     Dosage: STRENGTH 300 MG/2 ML
     Route: 058
     Dates: start: 202411

REACTIONS (5)
  - Nipple pain [Unknown]
  - Breast pain [Unknown]
  - Oropharyngeal pain [Unknown]
  - Dry mouth [Unknown]
  - Tendon disorder [Unknown]
